FAERS Safety Report 5967616-2 (Version None)
Quarter: 2008Q4

REPORT INFORMATION
  Report Type: 
  Country: None (occurrence: None)
  Receive Date: 20081126
  Receipt Date: 20081116
  Transmission Date: 20090506
  Serious: Yes (Hospitalization)
  Sender: FDA-Public Use
  Company Number: PHEH2008US09172

PATIENT
  Sex: Female
  Weight: 72.562 kg

DRUGS (4)
  1. RECLAST [Suspect]
     Indication: OSTEOPOROSIS
     Dosage: 5 MG, ONCE/SINGLE
     Route: 042
     Dates: start: 20080901
  2. ALLOPURINOL [Concomitant]
  3. SYNTHROID [Concomitant]
  4. HYDROCHLOROTHIAZIDE [Concomitant]

REACTIONS (12)
  - BACK PAIN [None]
  - BLOOD CALCIUM DECREASED [None]
  - BLOOD PHOSPHORUS DECREASED [None]
  - BLOOD SODIUM DECREASED [None]
  - DYSPHAGIA [None]
  - FEELING ABNORMAL [None]
  - HYPOAESTHESIA ORAL [None]
  - ILEUS [None]
  - INAPPROPRIATE ANTIDIURETIC HORMONE SECRETION [None]
  - MYALGIA [None]
  - NAUSEA [None]
  - VOMITING [None]
